FAERS Safety Report 6148210-X (Version None)
Quarter: 2009Q2

REPORT INFORMATION
  Report Type: 
  Country: None (occurrence: None)
  Receive Date: 20090408
  Receipt Date: 20090330
  Transmission Date: 20091009
  Serious: Yes (Other)
  Sender: FDA-Public Use
  Company Number: CH-JNJFOC-20090206303

PATIENT
  Sex: Female

DRUGS (8)
  1. REMICADE [Suspect]
     Dosage: 25TH INFUSION
     Route: 042
  2. REMICADE [Suspect]
     Route: 042
  3. REMICADE [Suspect]
     Indication: RHEUMATOID ARTHRITIS
     Route: 042
  4. METHOTREXATE [Concomitant]
  5. METHOTREXATE [Concomitant]
  6. PREDNISONE [Concomitant]
  7. EVISTA [Concomitant]
     Indication: OSTEOPOROSIS
  8. SOTALEX [Concomitant]
     Indication: SUPRAVENTRICULAR TACHYCARDIA

REACTIONS (2)
  - LEUKOENCEPHALOPATHY [None]
  - MENINGIOMA [None]
